FAERS Safety Report 26034325 (Version 1)
Quarter: 2025Q4

REPORT INFORMATION
  Report Type: Other
  Country: MD (occurrence: MD)
  Receive Date: 20251112
  Receipt Date: 20251112
  Transmission Date: 20260118
  Serious: Yes (Other)
  Sender: LUPIN
  Company Number: None

PATIENT
  Age: 61 Year
  Sex: Male
  Weight: 50 kg

DRUGS (5)
  1. LINEZOLID [Suspect]
     Active Substance: LINEZOLID
     Indication: Pulmonary tuberculosis
     Dosage: 600 MG, QD (1 PER 1 DAY )
     Dates: start: 20230829, end: 20240607
  2. CLOFAZIMINE [Concomitant]
     Active Substance: CLOFAZIMINE
     Indication: Pulmonary tuberculosis
     Dosage: 100 MG, QD (1 PER 1 DAY)
     Dates: start: 20230829
  3. BEDAQUILINE [Concomitant]
     Active Substance: BEDAQUILINE
     Indication: Pulmonary tuberculosis
     Dosage: 200 MG, QD (1 PER 1 DAY) (300 MG NOCTURNAL DOSE FOR 3 DAYS)
     Dates: start: 20230829
  4. DELAMANID [Concomitant]
     Active Substance: DELAMANID
     Indication: Pulmonary tuberculosis
     Dosage: 2 GM, QD (1 PER 1 DAY)
     Dates: start: 20240420
  5. CYCLOSERINE [Concomitant]
     Active Substance: CYCLOSERINE
     Indication: Pulmonary tuberculosis
     Dosage: 250 MG, QD (1 PER 1 DAY )
     Dates: start: 20230829

REACTIONS (4)
  - Headache [Unknown]
  - Dizziness [Unknown]
  - Haemoglobin decreased [Unknown]
  - Red blood cell abnormality [Unknown]

NARRATIVE: CASE EVENT DATE: 20240607
